FAERS Safety Report 7747811-2 (Version None)
Quarter: 2011Q3

REPORT INFORMATION
  Report Type: 
  Country: None (occurrence: None)
  Receive Date: 20110913
  Receipt Date: 20110830
  Transmission Date: 20111222
  Serious: Yes (Other)
  Sender: FDA-Public Use
  Company Number: TW-JNJFOC-20110900819

PATIENT
  Age: 45 Year
  Sex: Female

DRUGS (2)
  1. LISTERINE VANILLA MINT [Suspect]
     Indication: DENTAL DISORDER PROPHYLAXIS
     Dosage: ABOUT  20CC
     Route: 048
     Dates: start: 20110820
  2. LISTERINE CITRUS FRESH MOUTHWASH [Suspect]
     Indication: DENTAL DISORDER PROPHYLAXIS
     Dosage: ABOUT 20CC
     Route: 048
     Dates: start: 20110820

REACTIONS (3)
  - PRODUCT QUALITY ISSUE [None]
  - APPLICATION SITE BURN [None]
  - REACTION TO DRUG EXCIPIENTS [None]
